FAERS Safety Report 12247914 (Version 1)
Quarter: 2016Q2

REPORT INFORMATION
  Report Type: Spontaneous
  Country: FR (occurrence: FR)
  Receive Date: 20160408
  Receipt Date: 20160408
  Transmission Date: 20160815
  Serious: Yes (Other)
  Sender: FDA-Public Use
  Company Number: FR-ROCHE-1733921

PATIENT
  Sex: Female

DRUGS (2)
  1. AERIUS [Concomitant]
     Active Substance: DESLORATADINE
  2. XOLAIR [Suspect]
     Active Substance: OMALIZUMAB
     Indication: CHRONIC SPONTANEOUS URTICARIA
     Route: 065

REACTIONS (5)
  - Erythema [Recovered/Resolved]
  - Pruritus [Recovered/Resolved]
  - Lip oedema [Recovered/Resolved]
  - Mycosis fungoides stage IV [Recovered/Resolved]
  - Pain [Recovered/Resolved]
